FAERS Safety Report 5816198-4 (Version None)
Quarter: 2008Q3

REPORT INFORMATION
  Report Type: 
  Country: None (occurrence: None)
  Receive Date: 20080721
  Receipt Date: 20080715
  Transmission Date: 20090109
  Serious: Yes (Hospitalization)
  Sender: FDA-Public Use
  Company Number: B0524489A

PATIENT
  Age: 67 Year
  Sex: Female

DRUGS (9)
  1. VALTREX [Suspect]
     Indication: HERPES SIMPLEX
     Dosage: 500MG TWICE PER DAY
     Route: 048
     Dates: start: 20080604, end: 20080605
  2. TAXOL [Concomitant]
  3. HERCEPTIN [Concomitant]
  4. TAKEPRON [Concomitant]
     Indication: GASTRITIS
     Dosage: 15MG PER DAY
     Route: 048
     Dates: start: 20080424
  5. PREDNISOLONE [Concomitant]
     Indication: INTERSTITIAL LUNG DISEASE
     Route: 048
     Dates: start: 20080412
  6. FLORID [Concomitant]
     Indication: ORAL CANDIDIASIS
     Route: 061
     Dates: start: 20080422
  7. HEAVY MAGNESIUM OXIDE [Concomitant]
     Indication: CONSTIPATION
     Dosage: 4.5G PER DAY
     Route: 048
     Dates: start: 20080501
  8. MYSLEE [Concomitant]
     Indication: INSOMNIA
     Dosage: 5MG PER DAY
     Route: 048
  9. LOXONIN [Concomitant]
     Indication: PAIN
     Route: 048
     Dates: start: 20080609

REACTIONS (3)
  - NEUTROPHIL COUNT DECREASED [None]
  - PYREXIA [None]
  - WHITE BLOOD CELL COUNT DECREASED [None]
